FAERS Safety Report 4476136-6 (Version None)
Quarter: 2004Q4

REPORT INFORMATION
  Report Type: 
  Country: None (occurrence: None)
  Receive Date: 20041015
  Receipt Date: 20040825
  Transmission Date: 20050328
  Serious: Yes (Hospitalization)
  Sender: FDA-Public Use
  Company Number: US-AMGEN-US088494

PATIENT
  Sex: Male
  Weight: 44.5 kg

DRUGS (2)
  1. ETANERCEPT [Suspect]
     Indication: GRAFT VERSUS HOST DISEASE
     Dates: start: 20040806
  2. CORTICOSTEROID NOS [Concomitant]

REACTIONS (9)
  - BENIGN INTRACRANIAL HYPERTENSION [None]
  - CEREBRAL ATROPHY [None]
  - CEREBRAL VENOUS THROMBOSIS [None]
  - CONDITION AGGRAVATED [None]
  - FREQUENT BOWEL MOVEMENTS [None]
  - GRAFT VERSUS HOST DISEASE [None]
  - MENINGITIS ASEPTIC [None]
  - NEUROTOXICITY [None]
  - PNEUMONITIS [None]
